FAERS Safety Report 7418914-7 (Version None)
Quarter: 2011Q2

REPORT INFORMATION
  Report Type: 
  Country: None (occurrence: None)
  Receive Date: 20110415
  Receipt Date: 20110404
  Transmission Date: 20111010
  Serious: Yes (Other)
  Sender: FDA-Public Use
  Company Number: CY-ELI_LILLY_AND_COMPANY-CY201104001233

PATIENT
  Age: 41 Year
  Sex: Female

DRUGS (3)
  1. CYMBALTA [Suspect]
     Indication: MAJOR DEPRESSION
     Dosage: 60 MG, QD
  2. NEXIUM [Concomitant]
     Dosage: 20 MG, BID
  3. OMEPRAZOLE [Concomitant]

REACTIONS (4)
  - SOMNOLENCE [None]
  - ANAPHYLACTIC REACTION [None]
  - NAUSEA [None]
  - DYSPNOEA [None]
